FAERS Safety Report 19444093 (Version 1)
Quarter: 2021Q2

REPORT INFORMATION
  Report Type: Spontaneous
  Country: CA (occurrence: CA)
  Receive Date: 20210621
  Receipt Date: 20210621
  Transmission Date: 20210717
  Serious: Yes (Life-Threatening, Hospitalization, Other)
  Sender: FDA-Public Use
  Company Number: CA-JNJFOC-20210638593

PATIENT
  Age: 53 Year
  Sex: Male
  Weight: 100 kg

DRUGS (13)
  1. FOLIC ACID. [Concomitant]
     Active Substance: FOLIC ACID
  2. LANSOPRAZOLE. [Concomitant]
     Active Substance: LANSOPRAZOLE
     Dosage: DELAYED RELEASE
  3. METHOTREXATE. [Concomitant]
     Active Substance: METHOTREXATE
     Route: 037
  4. ROSUVASTATIN. [Concomitant]
     Active Substance: ROSUVASTATIN
  5. TESTOSTERONE. [Concomitant]
     Active Substance: TESTOSTERONE
  6. CELEBREX [Concomitant]
     Active Substance: CELECOXIB
  7. ZOPICLONE [Concomitant]
     Active Substance: ZOPICLONE
  8. ALLOPURINOL. [Concomitant]
     Active Substance: ALLOPURINOL
  9. ASA [Concomitant]
     Active Substance: ASPIRIN
  10. ENDOCET [Concomitant]
     Active Substance: ACETAMINOPHEN\OXYCODONE HYDROCHLORIDE
  11. MORPHINE [Concomitant]
     Active Substance: MORPHINE
  12. TOPIRAMATE. [Concomitant]
     Active Substance: TOPIRAMATE
  13. REMICADE [Suspect]
     Active Substance: INFLIXIMAB
     Indication: ARTHRITIS
     Route: 042

REACTIONS (3)
  - Off label use [Unknown]
  - Diffuse large B-cell lymphoma stage IV [Not Recovered/Not Resolved]
  - Product use in unapproved indication [Unknown]
